FAERS Safety Report 23306038 (Version 2)
Quarter: 2023Q4

REPORT INFORMATION
  Report Type: Spontaneous
  Country: US (occurrence: US)
  Receive Date: 20231218
  Receipt Date: 20231220
  Transmission Date: 20240110
  Serious: No
  Sender: FDA-Public Use
  Company Number: US-AMGEN-USASP2023223529

PATIENT
  Age: 31 Year
  Sex: Male

DRUGS (3)
  1. OTEZLA [Suspect]
     Active Substance: APREMILAST
     Indication: Psoriasis
     Dosage: 30 MILLIGRAM, BID
     Route: 048
  2. L Glutathione [Concomitant]
     Dosage: UNK
  3. GLUTALOEMINE [Concomitant]
     Dosage: UNK

REACTIONS (1)
  - Gastrooesophageal reflux disease [Unknown]
